FAERS Safety Report 7820619-5 (Version None)
Quarter: 2011Q4

REPORT INFORMATION
  Report Type: 
  Country: None (occurrence: None)
  Receive Date: 20111012
  Receipt Date: 20111005
  Transmission Date: 20120403
  Serious: Yes (Hospitalization)
  Sender: FDA-Public Use
  Company Number: WAES 1110KOR00008

PATIENT
  Sex: Female

DRUGS (5)
  1. ASPIRIN [Concomitant]
  2. JANUVIA [Suspect]
     Indication: TYPE 2 DIABETES MELLITUS
     Dosage: 100 MG/DAILY/PO
     Route: 048
     Dates: start: 20101004
  3. OLMESARTAN MEDOXOMIL [Concomitant]
  4. METOCLOPRAMIDE HYDROCHLORIDE [Concomitant]
  5. MG OH [Concomitant]

REACTIONS (1)
  - RENAL FAILURE CHRONIC [None]
